FAERS Safety Report 9137945 (Version 1)
Quarter: 2013Q1

REPORT INFORMATION
  Report Type: Other
  Country: FR (occurrence: FR)
  Receive Date: 20130304
  Receipt Date: 20130304
  Transmission Date: 20140127
  Serious: Yes (Hospitalization)
  Sender: FDA-Public Use
  Company Number: FR-WATSON-2013-03551

PATIENT
  Age: 79 Year
  Sex: Female

DRUGS (3)
  1. CARBOPLATIN (WATSON LABORATORIES) [Suspect]
     Indication: OVARIAN CANCER
     Dosage: 450 MG, UNKNOWN
     Route: 042
     Dates: start: 20120809, end: 20120809
  2. TAXOL [Concomitant]
     Indication: PRODUCT USED FOR UNKNOWN INDICATION
     Dosage: UNK, UNKNOWN
     Route: 065
  3. AVASTIN /00848101/ [Concomitant]
     Indication: PRODUCT USED FOR UNKNOWN INDICATION
     Dosage: UNK, UNKNOWN
     Route: 065

REACTIONS (5)
  - Hypersensitivity [Recovered/Resolved]
  - Erythema [Recovered/Resolved]
  - Formication [Recovered/Resolved]
  - Pruritus [Recovered/Resolved]
  - Nausea [Recovered/Resolved]
